FAERS Safety Report 15978949 (Version 1)
Quarter: 2019Q1

REPORT INFORMATION
  Report Type: Spontaneous
  Country: GB (occurrence: GB)
  Receive Date: 20190219
  Receipt Date: 20190219
  Transmission Date: 20190418
  Serious: Yes (Other)
  Sender: FDA-Public Use
  Company Number: GB-ROCHE-2267553

PATIENT
  Age: 15 Year
  Sex: Female

DRUGS (1)
  1. XOLAIR [Suspect]
     Active Substance: OMALIZUMAB
     Indication: ASTHMA
     Route: 065
     Dates: start: 201603

REACTIONS (7)
  - Memory impairment [Unknown]
  - Systemic lupus erythematosus [Unknown]
  - Anxiety [Unknown]
  - Blood immunoglobulin E increased [Unknown]
  - Depression [Unknown]
  - Headache [Unknown]
  - Pain in extremity [Unknown]
